FAERS Safety Report 21279563 (Version 1)
Quarter: 2022Q3

REPORT INFORMATION
  Report Type: Spontaneous
  Country: IE (occurrence: IE)
  Receive Date: 20220901
  Receipt Date: 20220901
  Transmission Date: 20221027
  Serious: Yes (Hospitalization, Other)
  Sender: FDA-Public Use
  Company Number: None

PATIENT
  Age: 23 Year
  Sex: Male

DRUGS (7)
  1. LEVOFLOXACIN [Interacting]
     Active Substance: LEVOFLOXACIN
     Indication: Lower respiratory tract infection
     Route: 042
     Dates: start: 20220703, end: 20220706
  2. ALPRAZOLAM [Interacting]
     Active Substance: ALPRAZOLAM
     Dosage: MORNING
     Route: 065
     Dates: start: 20220705
  3. ALPRAZOLAM [Interacting]
     Active Substance: ALPRAZOLAM
     Dosage: UNK
     Route: 065
     Dates: start: 20220704
  4. EPILIM [Concomitant]
     Active Substance: VALPROATE SODIUM
     Indication: Epilepsy
     Dosage: VALPROATE SODIUM - STRENGTH IS 133.2 MILLIGRAM, VALPROI ACID STRENGTH IS 58 MILLIGRAM
     Route: 065
  5. TOPAMAX [Concomitant]
     Active Substance: TOPIRAMATE
     Route: 065
  6. RISPERIDONE [Concomitant]
     Active Substance: RISPERIDONE
     Dosage: (GENERIC) LOW DOSE
     Route: 065
  7. SERTRALINE [Concomitant]
     Active Substance: SERTRALINE HYDROCHLORIDE
     Dosage: (GENERIC)
     Route: 065

REACTIONS (5)
  - Acute psychosis [Not Recovered/Not Resolved]
  - Aggression [Not Recovered/Not Resolved]
  - Drug interaction [Not Recovered/Not Resolved]
  - Loss of consciousness [Not Recovered/Not Resolved]
  - Seizure [Not Recovered/Not Resolved]

NARRATIVE: CASE EVENT DATE: 20220703
